FAERS Safety Report 25117277 (Version 4)
Quarter: 2025Q2

REPORT INFORMATION
  Report Type: Spontaneous
  Country: CA (occurrence: CA)
  Receive Date: 20250325
  Receipt Date: 20250610
  Transmission Date: 20250716
  Serious: Yes (Death, Life-Threatening, Hospitalization, Disabling, Other)
  Sender: Haleon PLC
  Company Number: CA-SANDOZ-SDZ2025CA016291

PATIENT
  Age: 44 Year
  Sex: Female
  Weight: 97 kg

DRUGS (214)
  1. DICLOFENAC SODIUM [Suspect]
     Active Substance: DICLOFENAC SODIUM
     Indication: Rheumatoid arthritis
     Route: 058
  2. DICLOFENAC SODIUM [Suspect]
     Active Substance: DICLOFENAC SODIUM
     Route: 048
  3. DICLOFENAC SODIUM [Suspect]
     Active Substance: DICLOFENAC SODIUM
  4. DICLOFENAC SODIUM [Suspect]
     Active Substance: DICLOFENAC SODIUM
     Route: 058
  5. DICLOFENAC SODIUM [Suspect]
     Active Substance: DICLOFENAC SODIUM
     Route: 050
  6. DICLOFENAC SODIUM [Suspect]
     Active Substance: DICLOFENAC SODIUM
     Route: 050
  7. ASACOL [Suspect]
     Active Substance: MESALAMINE
     Indication: Crohn^s disease
  8. PREVACID [Suspect]
     Active Substance: LANSOPRAZOLE
     Indication: Product used for unknown indication
     Route: 048
  9. QUETIAPINE FUMARATE [Suspect]
     Active Substance: QUETIAPINE FUMARATE
     Indication: Product used for unknown indication
  10. ZESTRIL [Suspect]
     Active Substance: LISINOPRIL
     Indication: Product used for unknown indication
     Route: 050
  11. LEFLUNOMIDE [Suspect]
     Active Substance: LEFLUNOMIDE
     Indication: Rheumatoid arthritis
     Route: 050
  12. EMEND [Suspect]
     Active Substance: APREPITANT
     Indication: Product used for unknown indication
     Dosage: 2000 MG, QD
     Route: 050
  13. CAFFEINE [Suspect]
     Active Substance: CAFFEINE
     Indication: Rheumatoid arthritis
  14. SULFASALAZINE [Suspect]
     Active Substance: SULFASALAZINE
     Indication: Product used for unknown indication
     Dosage: 1000 G, 1 EVERY 2 DAYS
  15. SULFASALAZINE [Suspect]
     Active Substance: SULFASALAZINE
  16. CAFFEINE CITRATE [Suspect]
     Active Substance: CAFFEINE CITRATE
     Indication: Product used for unknown indication
     Route: 050
  17. PREDNISONE [Suspect]
     Active Substance: PREDNISONE
     Indication: Condition aggravated
  18. PREDNISONE [Suspect]
     Active Substance: PREDNISONE
     Indication: Rheumatoid arthritis
     Route: 048
  19. DOXYCYCLINE [Suspect]
     Active Substance: DOXYCYCLINE
     Indication: Rheumatoid arthritis
     Route: 050
  20. PERCOCET [Suspect]
     Active Substance: ACETAMINOPHEN\OXYCODONE HYDROCHLORIDE
     Indication: Rheumatoid arthritis
     Dosage: 25 MG, QD
     Route: 050
  21. PERCOCET [Suspect]
     Active Substance: ACETAMINOPHEN\OXYCODONE HYDROCHLORIDE
     Dosage: 17.857 MG, QD
     Route: 050
  22. MYCOPHENOLATE MOFETIL [Suspect]
     Active Substance: MYCOPHENOLATE MOFETIL
     Indication: Rheumatoid arthritis
     Route: 050
  23. DICLOFENAC POTASSIUM [Suspect]
     Active Substance: DICLOFENAC POTASSIUM
     Indication: Rheumatoid arthritis
     Route: 048
  24. ORENCIA [Suspect]
     Active Substance: ABATACEPT
     Indication: Rheumatoid arthritis
     Dosage: 125 MG, 1 EVERY 1 WEEKS
     Route: 058
  25. ORENCIA [Suspect]
     Active Substance: ABATACEPT
  26. ORENCIA [Suspect]
     Active Substance: ABATACEPT
  27. ORENCIA [Suspect]
     Active Substance: ABATACEPT
     Dosage: 18 MG, QW
  28. ORENCIA [Suspect]
     Active Substance: ABATACEPT
     Dosage: 18 MG, QW
     Route: 058
  29. ORENCIA [Suspect]
     Active Substance: ABATACEPT
     Dosage: 125 MG, QW (125 MG, 1 EVERY 1 WEEKS)
     Route: 042
  30. ORENCIA [Suspect]
     Active Substance: ABATACEPT
     Dosage: 17 MG, QD
     Route: 058
  31. FLUMETHASONE PIVALATE [Suspect]
     Active Substance: FLUMETHASONE PIVALATE
     Indication: Rheumatoid arthritis
     Dosage: 10 MG, QD
  32. CHOLECALCIFEROL [Suspect]
     Active Substance: CHOLECALCIFEROL
     Indication: Rheumatoid arthritis
     Route: 058
  33. CHOLECALCIFEROL [Suspect]
     Active Substance: CHOLECALCIFEROL
  34. MORPHINE [Suspect]
     Active Substance: MORPHINE
     Indication: Rheumatoid arthritis
     Route: 050
  35. ERYTHROMYCIN [Suspect]
     Active Substance: ERYTHROMYCIN
     Indication: Product used for unknown indication
  36. ERELZI [Suspect]
     Active Substance: ETANERCEPT-SZZS
     Indication: Rheumatoid arthritis
     Dosage: 50 MG, QD
     Route: 058
  37. ERELZI [Suspect]
     Active Substance: ETANERCEPT-SZZS
  38. DIPHENHYDRAMINE HYDROCHLORIDE [Suspect]
     Active Substance: DIPHENHYDRAMINE HYDROCHLORIDE
     Indication: Product used for unknown indication
  39. CHLORHEXIDINE [Suspect]
     Active Substance: CHLORHEXIDINE
     Indication: Rheumatoid arthritis
     Dosage: 120 MG, QD
     Route: 048
  40. CHLORHEXIDINE [Suspect]
     Active Substance: CHLORHEXIDINE
  41. CHLORHEXIDINE [Suspect]
     Active Substance: CHLORHEXIDINE
     Route: 048
  42. CHLORHEXIDINE [Suspect]
     Active Substance: CHLORHEXIDINE
  43. CHLORHEXIDINE [Suspect]
     Active Substance: CHLORHEXIDINE
  44. CHLORHEXIDINE [Suspect]
     Active Substance: CHLORHEXIDINE
     Dosage: 120 MG, QW
     Route: 058
  45. PSEUDOEPHEDRINE [Suspect]
     Active Substance: PSEUDOEPHEDRINE
     Indication: Off label use
  46. PSEUDOEPHEDRINE [Suspect]
     Active Substance: PSEUDOEPHEDRINE
     Indication: Rheumatoid arthritis
  47. PSEUDOEPHEDRINE [Suspect]
     Active Substance: PSEUDOEPHEDRINE
  48. PSEUDOEPHEDRINE [Suspect]
     Active Substance: PSEUDOEPHEDRINE
  49. OTEZLA [Suspect]
     Active Substance: APREMILAST
     Indication: Rheumatoid arthritis
  50. OTEZLA [Suspect]
     Active Substance: APREMILAST
  51. OTEZLA [Suspect]
     Active Substance: APREMILAST
     Dosage: 3 MG
     Route: 048
  52. DOXYCYCLINE HYCLATE [Suspect]
     Active Substance: DOXYCYCLINE HYCLATE
     Indication: Rheumatoid arthritis
     Route: 050
  53. ALBUTEROL SULFATE [Suspect]
     Active Substance: ALBUTEROL SULFATE
     Indication: Product used for unknown indication
  54. MELOXICAM [Suspect]
     Active Substance: MELOXICAM
     Indication: Product used for unknown indication
  55. ADALIMUMAB [Suspect]
     Active Substance: ADALIMUMAB
     Indication: Rheumatoid arthritis
     Route: 058
  56. ADALIMUMAB [Suspect]
     Active Substance: ADALIMUMAB
     Indication: Psoriatic arthropathy
     Route: 058
  57. ADALIMUMAB [Suspect]
     Active Substance: ADALIMUMAB
  58. MAGNESIUM [Suspect]
     Active Substance: MAGNESIUM
     Indication: Product used for unknown indication
     Route: 050
  59. FLUOROMETHOLONE [Suspect]
     Active Substance: FLUOROMETHOLONE
     Indication: Product used for unknown indication
     Route: 050
  60. ISOPROPYL ALCOHOL [Suspect]
     Active Substance: ISOPROPYL ALCOHOL
     Indication: Product used for unknown indication
  61. ARAVA [Suspect]
     Active Substance: LEFLUNOMIDE
     Indication: Rheumatoid arthritis
     Route: 019
  62. ARAVA [Suspect]
     Active Substance: LEFLUNOMIDE
     Route: 019
  63. ARAVA [Suspect]
     Active Substance: LEFLUNOMIDE
     Dosage: 2000 MG, QD
  64. ARAVA [Suspect]
     Active Substance: LEFLUNOMIDE
     Dosage: 20 MG
     Route: 048
  65. ARAVA [Suspect]
     Active Substance: LEFLUNOMIDE
     Dosage: 10 MG, QD
     Route: 048
  66. ARAVA [Suspect]
     Active Substance: LEFLUNOMIDE
     Dosage: 1 DOSAGE FORM, QD
  67. ARAVA [Suspect]
     Active Substance: LEFLUNOMIDE
     Route: 005
  68. VITAMIN C [Suspect]
     Active Substance: ASCORBIC ACID
     Indication: Product used for unknown indication
  69. HUMIRA [Suspect]
     Active Substance: ADALIMUMAB
     Indication: Rheumatoid arthritis
     Route: 058
  70. HUMIRA [Suspect]
     Active Substance: ADALIMUMAB
     Route: 058
  71. HUMIRA [Suspect]
     Active Substance: ADALIMUMAB
     Route: 058
  72. HUMIRA [Suspect]
     Active Substance: ADALIMUMAB
     Route: 058
  73. PREGABALIN [Suspect]
     Active Substance: PREGABALIN
     Indication: Product used for unknown indication
     Route: 048
  74. PHTHALYLSULFATHIAZOLE [Suspect]
     Active Substance: PHTHALYLSULFATHIAZOLE
     Indication: Rheumatoid arthritis
     Route: 050
  75. PHTHALYLSULFATHIAZOLE [Suspect]
     Active Substance: PHTHALYLSULFATHIAZOLE
     Route: 050
  76. PHTHALYLSULFATHIAZOLE [Suspect]
     Active Substance: PHTHALYLSULFATHIAZOLE
     Route: 050
  77. PHTHALYLSULFATHIAZOLE [Suspect]
     Active Substance: PHTHALYLSULFATHIAZOLE
     Route: 050
  78. PHTHALYLSULFATHIAZOLE [Suspect]
     Active Substance: PHTHALYLSULFATHIAZOLE
     Route: 050
  79. ENBREL [Suspect]
     Active Substance: ETANERCEPT
     Indication: Rheumatoid arthritis
     Route: 058
  80. ENBREL [Suspect]
     Active Substance: ETANERCEPT
     Dosage: 50 MG, QW
     Route: 058
  81. ENBREL [Suspect]
     Active Substance: ETANERCEPT
     Route: 058
  82. ENBREL [Suspect]
     Active Substance: ETANERCEPT
     Dosage: 20 MG, QD
     Route: 058
  83. ENBREL [Suspect]
     Active Substance: ETANERCEPT
     Route: 058
  84. ENBREL [Suspect]
     Active Substance: ETANERCEPT
     Dosage: 20 MG, QW
     Route: 058
  85. ENBREL [Suspect]
     Active Substance: ETANERCEPT
  86. DESOXIMETASONE [Suspect]
     Active Substance: DESOXIMETASONE
     Indication: Rheumatoid arthritis
  87. DESOXIMETASONE [Suspect]
     Active Substance: DESOXIMETASONE
     Route: 003
  88. DESOXIMETASONE [Suspect]
     Active Substance: DESOXIMETASONE
  89. DESOXIMETASONE [Suspect]
     Active Substance: DESOXIMETASONE
     Route: 067
  90. DESOXIMETASONE [Suspect]
     Active Substance: DESOXIMETASONE
     Route: 003
  91. DESOXIMETASONE [Suspect]
     Active Substance: DESOXIMETASONE
     Route: 048
  92. DESOXIMETASONE [Suspect]
     Active Substance: DESOXIMETASONE
  93. DESOXIMETASONE [Suspect]
     Active Substance: DESOXIMETASONE
     Route: 067
  94. DESOXIMETASONE [Suspect]
     Active Substance: DESOXIMETASONE
  95. DESOXIMETASONE [Suspect]
     Active Substance: DESOXIMETASONE
  96. DESOXIMETASONE [Suspect]
     Active Substance: DESOXIMETASONE
     Route: 048
  97. ALENDRONATE SODIUM [Suspect]
     Active Substance: ALENDRONATE SODIUM
     Indication: Rheumatoid arthritis
     Route: 016
  98. ALENDRONATE SODIUM [Suspect]
     Active Substance: ALENDRONATE SODIUM
     Dosage: 2000 MG, QD
     Route: 058
  99. ALENDRONATE SODIUM [Suspect]
     Active Substance: ALENDRONATE SODIUM
  100. PLAQUENIL [Suspect]
     Active Substance: HYDROXYCHLOROQUINE SULFATE
     Indication: Rheumatoid arthritis
  101. PLAQUENIL [Suspect]
     Active Substance: HYDROXYCHLOROQUINE SULFATE
     Dosage: 400 MG, QD
     Route: 005
  102. ADVIL [Suspect]
     Active Substance: IBUPROFEN
     Indication: Product used for unknown indication
  103. ACETAMINOPHEN [Suspect]
     Active Substance: ACETAMINOPHEN
     Indication: Rheumatoid arthritis
  104. ACETAMINOPHEN [Suspect]
     Active Substance: ACETAMINOPHEN
  105. ACETAMINOPHEN [Suspect]
     Active Substance: ACETAMINOPHEN
  106. ACETAMINOPHEN [Suspect]
     Active Substance: ACETAMINOPHEN
     Route: 058
  107. GLUCOSAMINE [Suspect]
     Active Substance: GLUCOSAMINE
     Indication: Rheumatoid arthritis
     Route: 050
  108. INFLIXIMAB [Suspect]
     Active Substance: INFLIXIMAB
     Indication: Rheumatoid arthritis
  109. PARA-AMINOSALICYLIC ACID [Suspect]
     Active Substance: AMINOSALICYLIC ACID
     Indication: Product used for unknown indication
  110. ACETAMINOPHEN [Suspect]
     Active Substance: ACETAMINOPHEN
     Indication: Crohn^s disease
     Route: 048
  111. ACETAMINOPHEN [Suspect]
     Active Substance: ACETAMINOPHEN
     Indication: Rheumatoid arthritis
  112. ACETAMINOPHEN [Suspect]
     Active Substance: ACETAMINOPHEN
     Route: 058
  113. ACETAMINOPHEN [Suspect]
     Active Substance: ACETAMINOPHEN
     Route: 058
  114. ACETAMINOPHEN [Suspect]
     Active Substance: ACETAMINOPHEN
     Route: 048
  115. XELJANZ [Suspect]
     Active Substance: TOFACITINIB CITRATE
     Indication: Rheumatoid arthritis
     Dosage: 5 MG, QW
     Route: 048
  116. XELJANZ [Suspect]
     Active Substance: TOFACITINIB CITRATE
     Dosage: 10 MG, QW
  117. LANSOPRAZOLE [Suspect]
     Active Substance: LANSOPRAZOLE
     Indication: Rheumatoid arthritis
     Route: 050
  118. CALTRATE [Suspect]
     Active Substance: CALCIUM CARBONATE
     Indication: Product used for unknown indication
  119. RAMIPRIL [Suspect]
     Active Substance: RAMIPRIL
     Indication: Product used for unknown indication
     Route: 050
  120. CHLORAPREP [Suspect]
     Active Substance: CHLORHEXIDINE GLUCONATE\ISOPROPYL ALCOHOL
     Indication: Rheumatoid arthritis
     Dosage: 12 MG, QD
     Route: 058
  121. CHLORAPREP [Suspect]
     Active Substance: CHLORHEXIDINE GLUCONATE\ISOPROPYL ALCOHOL
  122. COSENTYX [Suspect]
     Active Substance: SECUKINUMAB
     Indication: Rheumatoid arthritis
     Route: 050
  123. COSENTYX [Suspect]
     Active Substance: SECUKINUMAB
     Indication: Psoriatic arthropathy
     Route: 050
  124. STELARA [Suspect]
     Active Substance: USTEKINUMAB
     Indication: Product used for unknown indication
     Route: 058
  125. CIMZIA [Suspect]
     Active Substance: CERTOLIZUMAB PEGOL
     Indication: Rheumatoid arthritis
     Route: 050
  126. CIMZIA [Suspect]
     Active Substance: CERTOLIZUMAB PEGOL
     Indication: Psoriasis
     Route: 050
  127. ALBUTEROL [Suspect]
     Active Substance: ALBUTEROL
     Indication: Product used for unknown indication
  128. LISINOPRIL [Suspect]
     Active Substance: LISINOPRIL
     Indication: Product used for unknown indication
     Route: 050
  129. SULFASALAZINE [Suspect]
     Active Substance: SULFASALAZINE
     Indication: Rheumatoid arthritis
  130. SULFASALAZINE [Suspect]
     Active Substance: SULFASALAZINE
     Dosage: 1000 MG, QD
     Route: 048
  131. SULFASALAZINE [Suspect]
     Active Substance: SULFASALAZINE
  132. SULFASALAZINE [Suspect]
     Active Substance: SULFASALAZINE
     Route: 048
  133. SULFASALAZINE [Suspect]
     Active Substance: SULFASALAZINE
     Dosage: 500 MG, QD
     Route: 048
  134. SULFASALAZINE [Suspect]
     Active Substance: SULFASALAZINE
     Dosage: 1.0 DF, 1 EVERY 5 DAYS
     Route: 048
  135. SULFASALAZINE [Suspect]
     Active Substance: SULFASALAZINE
     Route: 048
  136. SULFASALAZINE [Suspect]
     Active Substance: SULFASALAZINE
     Dosage: 2000 MG, QD
     Route: 048
  137. FOLIC ACID [Suspect]
     Active Substance: FOLIC ACID
     Indication: Rheumatoid arthritis
  138. FOLIC ACID [Suspect]
     Active Substance: FOLIC ACID
  139. FOLIC ACID [Suspect]
     Active Substance: FOLIC ACID
  140. FOLIC ACID [Suspect]
     Active Substance: FOLIC ACID
  141. FOLIC ACID [Suspect]
     Active Substance: FOLIC ACID
  142. FOLIC ACID [Suspect]
     Active Substance: FOLIC ACID
  143. FOLIC ACID [Suspect]
     Active Substance: FOLIC ACID
  144. FOLIC ACID [Suspect]
     Active Substance: FOLIC ACID
  145. FOLIC ACID [Suspect]
     Active Substance: FOLIC ACID
  146. HYALURONIDASE [Suspect]
     Active Substance: HYALURONIDASE
     Indication: Product used for unknown indication
  147. CETIRIZINE HYDROCHLORIDE [Suspect]
     Active Substance: CETIRIZINE HYDROCHLORIDE
     Indication: Off label use
     Dosage: 10 MG, QD
     Route: 050
  148. CETIRIZINE HYDROCHLORIDE [Suspect]
     Active Substance: CETIRIZINE HYDROCHLORIDE
     Indication: Rheumatoid arthritis
     Dosage: 25 MG, QD
     Route: 050
  149. CETIRIZINE HYDROCHLORIDE [Suspect]
     Active Substance: CETIRIZINE HYDROCHLORIDE
     Dosage: 120 MG, QD
     Route: 050
  150. CETIRIZINE HYDROCHLORIDE [Suspect]
     Active Substance: CETIRIZINE HYDROCHLORIDE
     Route: 050
  151. ALENDRONIC ACID [Suspect]
     Active Substance: ALENDRONIC ACID
     Indication: Rheumatoid arthritis
     Route: 050
  152. PREDNISONE [Suspect]
     Active Substance: PREDNISONE
     Indication: Rheumatoid arthritis
     Route: 050
  153. PREDNISONE [Suspect]
     Active Substance: PREDNISONE
     Indication: Condition aggravated
     Route: 050
  154. PREDNISONE [Suspect]
     Active Substance: PREDNISONE
     Indication: Arthralgia
     Route: 050
  155. PREDNISONE [Suspect]
     Active Substance: PREDNISONE
     Route: 050
  156. PREDNISONE [Suspect]
     Active Substance: PREDNISONE
     Route: 050
  157. IMURAN [Suspect]
     Active Substance: AZATHIOPRINE
     Indication: Rheumatoid arthritis
     Route: 050
  158. ALENDRONATE SODIUM [Suspect]
     Active Substance: ALENDRONATE SODIUM
     Indication: Rheumatoid arthritis
     Route: 050
  159. ALENDRONATE SODIUM [Suspect]
     Active Substance: ALENDRONATE SODIUM
     Dosage: 2000 MG, QD
     Route: 050
  160. CELECOXIB [Suspect]
     Active Substance: CELECOXIB
     Indication: Off label use
     Dosage: 10 MG, QD
  161. CELECOXIB [Suspect]
     Active Substance: CELECOXIB
     Indication: Rheumatoid arthritis
     Dosage: 7.5 MG, QD
     Route: 048
  162. CELECOXIB [Suspect]
     Active Substance: CELECOXIB
     Dosage: 2 DOSAGE FORM, QD
     Route: 048
  163. CELECOXIB [Suspect]
     Active Substance: CELECOXIB
     Dosage: 2 MG, QD
     Route: 048
  164. CELECOXIB [Suspect]
     Active Substance: CELECOXIB
     Dosage: 10 MG, QD
     Route: 048
  165. CELECOXIB [Suspect]
     Active Substance: CELECOXIB
  166. CELECOXIB [Suspect]
     Active Substance: CELECOXIB
     Dosage: 10 MG, QD
     Route: 048
  167. CELECOXIB [Suspect]
     Active Substance: CELECOXIB
     Dosage: 75 MG, QD
     Route: 048
  168. LORAZEPAM [Suspect]
     Active Substance: LORAZEPAM
     Indication: Rheumatoid arthritis
  169. FOSAPREPITANT [Suspect]
     Active Substance: FOSAPREPITANT
     Indication: Rheumatoid arthritis
  170. CETIRIZINE [Suspect]
     Active Substance: CETIRIZINE HYDROCHLORIDE
     Indication: Off label use
     Route: 050
  171. CETIRIZINE [Suspect]
     Active Substance: CETIRIZINE HYDROCHLORIDE
     Indication: Rheumatoid arthritis
     Route: 050
  172. CETIRIZINE [Suspect]
     Active Substance: CETIRIZINE HYDROCHLORIDE
     Route: 050
  173. RITUXIMAB [Suspect]
     Active Substance: RITUXIMAB
     Indication: Rheumatoid arthritis
     Route: 042
  174. RITUXIMAB [Suspect]
     Active Substance: RITUXIMAB
     Route: 016
  175. TOFACITINIB [Suspect]
     Active Substance: TOFACITINIB
     Indication: Rheumatoid arthritis
     Dosage: 10 MG, QD
  176. TUMS ULTRA [Suspect]
     Active Substance: CALCIUM CARBONATE
     Indication: Product used for unknown indication
  177. FOSAMAX [Suspect]
     Active Substance: ALENDRONATE SODIUM
     Indication: Rheumatoid arthritis
     Route: 005
  178. FOSAMAX [Suspect]
     Active Substance: ALENDRONATE SODIUM
     Route: 016
  179. FOSAMAX [Suspect]
     Active Substance: ALENDRONATE SODIUM
  180. FOSAMAX [Suspect]
     Active Substance: ALENDRONATE SODIUM
     Route: 048
  181. FOSAMAX [Suspect]
     Active Substance: ALENDRONATE SODIUM
     Route: 058
  182. MESALAMINE [Suspect]
     Active Substance: MESALAMINE
     Indication: Crohn^s disease
  183. METHOTREXATE [Suspect]
     Active Substance: METHOTREXATE
     Indication: Rheumatoid arthritis
     Dosage: 15 MG, QD
     Route: 048
  184. METHOTREXATE [Suspect]
     Active Substance: METHOTREXATE
     Dosage: 20 MG, 1 EVERY 1 WEEKS
     Route: 048
  185. METHOTREXATE [Suspect]
     Active Substance: METHOTREXATE
     Route: 048
  186. METHOTREXATE [Suspect]
     Active Substance: METHOTREXATE
  187. METHOTREXATE [Suspect]
     Active Substance: METHOTREXATE
     Route: 052
  188. METHOTREXATE [Suspect]
     Active Substance: METHOTREXATE
     Route: 016
  189. METHOTREXATE [Suspect]
     Active Substance: METHOTREXATE
     Dosage: 1 G, 1 EVERY 5 DAYS
  190. METHOTREXATE [Suspect]
     Active Substance: METHOTREXATE
     Dosage: 25 MG, QD
     Route: 048
  191. ERGOCALCIFEROL [Suspect]
     Active Substance: ERGOCALCIFEROL
     Indication: Rheumatoid arthritis
  192. PANTOPRAZOLE SODIUM [Suspect]
     Active Substance: PANTOPRAZOLE SODIUM
     Indication: Rheumatoid arthritis
  193. PANTOPRAZOLE SODIUM [Suspect]
     Active Substance: PANTOPRAZOLE SODIUM
     Route: 048
  194. PANTOPRAZOLE SODIUM [Suspect]
     Active Substance: PANTOPRAZOLE SODIUM
     Route: 048
  195. PANTOPRAZOLE SODIUM [Suspect]
     Active Substance: PANTOPRAZOLE SODIUM
     Route: 048
  196. ACTEMRA [Suspect]
     Active Substance: TOCILIZUMAB
     Indication: Rheumatoid arthritis
     Route: 050
  197. ACTEMRA [Suspect]
     Active Substance: TOCILIZUMAB
     Route: 050
  198. ACTEMRA [Suspect]
     Active Substance: TOCILIZUMAB
     Dosage: 752.8 MG, QD
     Route: 050
  199. ACTEMRA [Suspect]
     Active Substance: TOCILIZUMAB
     Route: 050
  200. ACTEMRA [Suspect]
     Active Substance: TOCILIZUMAB
     Dosage: 728 MG, QD
     Route: 050
  201. ACTEMRA [Suspect]
     Active Substance: TOCILIZUMAB
     Dosage: 20 MG, QD
     Route: 050
  202. ACTEMRA [Suspect]
     Active Substance: TOCILIZUMAB
     Dosage: 2912 MG, QD
     Route: 050
  203. TUMS ULTRA [Suspect]
     Active Substance: CALCIUM CARBONATE
     Indication: Product used for unknown indication
  204. CLIOQUINOL\FLUMETHASONE [Suspect]
     Active Substance: CLIOQUINOL\FLUMETHASONE
     Indication: Product used for unknown indication
  205. NAPROXEN SODIUM [Suspect]
     Active Substance: NAPROXEN SODIUM
     Indication: Rheumatoid arthritis
     Dosage: 0.5 MG, QD
  206. NAPROXEN SODIUM [Suspect]
     Active Substance: NAPROXEN SODIUM
  207. SIMPONI [Suspect]
     Active Substance: GOLIMUMAB
     Indication: Rheumatoid arthritis
     Route: 042
  208. SIMPONI [Suspect]
     Active Substance: GOLIMUMAB
     Route: 052
  209. SIMPONI [Suspect]
     Active Substance: GOLIMUMAB
     Route: 058
  210. CODEINE [Suspect]
     Active Substance: CODEINE
     Indication: Rheumatoid arthritis
  211. ATIVAN [Suspect]
     Active Substance: LORAZEPAM
     Indication: Rheumatoid arthritis
  212. DICLOFENAC SODIUM [Suspect]
     Active Substance: DICLOFENAC SODIUM
     Indication: Rheumatoid arthritis
     Route: 050
  213. DICLOFENAC SODIUM [Suspect]
     Active Substance: DICLOFENAC SODIUM
     Route: 050
  214. DICLOFENAC SODIUM [Suspect]
     Active Substance: DICLOFENAC SODIUM
     Route: 050

REACTIONS (11)
  - Systemic lupus erythematosus [Fatal]
  - Walking aid user [Fatal]
  - Swollen joint count [Fatal]
  - Swollen joint count increased [Fatal]
  - Visual impairment [Fatal]
  - Synovitis [Fatal]
  - Stomatitis [Fatal]
  - Vomiting [Fatal]
  - Type 2 diabetes mellitus [Fatal]
  - Urticaria [Fatal]
  - Swelling [Fatal]
